FAERS Safety Report 9232899 (Version 1)
Quarter: 2013Q2

REPORT INFORMATION
  Report Type: Spontaneous
  Country: BR (occurrence: BR)
  Receive Date: 20130416
  Receipt Date: 20130416
  Transmission Date: 20140414
  Serious: Yes (Other)
  Sender: FDA-Public Use
  Company Number: BR-JNJFOC-20120809934

PATIENT
  Age: 29 Year
  Sex: Female
  Weight: 61 kg

DRUGS (3)
  1. LISTERINE ZERO [Suspect]
     Indication: DENTAL DISORDER PROPHYLAXIS
     Route: 002
     Dates: start: 20120410, end: 20120814
  2. LISTERINE UNSPECIFIED [Suspect]
     Indication: PRODUCT USED FOR UNKNOWN INDICATION
     Route: 002
  3. UTROGESTAN [Suspect]
     Indication: PRODUCT USED FOR UNKNOWN INDICATION
     Route: 048
     Dates: start: 20120817

REACTIONS (5)
  - Exposure during pregnancy [Recovered/Resolved]
  - Premature rupture of membranes [Unknown]
  - Urinary tract infection [Unknown]
  - Application site pain [Recovered/Resolved]
  - Application site exfoliation [Recovered/Resolved]
